FAERS Safety Report 15249261 (Version 1)
Quarter: 2018Q3

REPORT INFORMATION
  Report Type: Spontaneous
  Country: ES (occurrence: ES)
  Receive Date: 20180807
  Receipt Date: 20180807
  Transmission Date: 20181010
  Serious: Yes (Hospitalization, Congenital Anomaly, Other)
  Sender: FDA-Public Use
  Company Number: ES-APOTEX-2018AP018050

PATIENT
  Age: 32 Week
  Sex: Male

DRUGS (2)
  1. AMLODIPINE [Suspect]
     Active Substance: AMLODIPINE BESYLATE
     Indication: PRODUCT USED FOR UNKNOWN INDICATION
     Dosage: UNK
     Route: 064
  2. OLMESARTAN [Suspect]
     Active Substance: OLMESARTAN
     Indication: PRODUCT USED FOR UNKNOWN INDICATION
     Dosage: UNK
     Route: 064

REACTIONS (5)
  - Foetal exposure during pregnancy [Unknown]
  - Renal ischaemia [Recovering/Resolving]
  - Premature baby [Unknown]
  - Renal failure neonatal [Recovering/Resolving]
  - Potter^s syndrome [Unknown]
